FAERS Safety Report 10510510 (Version 11)
Quarter: 2016Q3

REPORT INFORMATION
  Report Type: Report from Study
  Country: RU (occurrence: RU)
  Receive Date: 20141010
  Receipt Date: 20160811
  Transmission Date: 20161109
  Serious: Yes (Hospitalization)
  Sender: FDA-Public Use
  Company Number: RU-SA-CAMP-1002137

PATIENT
  Age: 21 Year
  Sex: Female
  Weight: 57.2 kg

DRUGS (14)
  1. ALEMTUZUMAB [Suspect]
     Active Substance: ALEMTUZUMAB
     Indication: MULTIPLE SCLEROSIS
     Dosage: 12 MG, QDX3
     Route: 042
     Dates: start: 20100426, end: 20100428
  2. THIAMAZOLE [Concomitant]
     Active Substance: METHIMAZOLE
     Indication: TOXIC NODULAR GOITRE
     Dosage: 10 MG, QID
     Route: 048
     Dates: start: 20111222, end: 20120206
  3. THIAMAZOLE [Concomitant]
     Active Substance: METHIMAZOLE
     Indication: TOXIC NODULAR GOITRE
     Dosage: 10 MG, TID
     Route: 048
     Dates: start: 20120207, end: 20120212
  4. MERCAZOLIL [Concomitant]
     Dates: start: 201108
  5. ADAPTOL [Concomitant]
     Dosage: 1 TABLET X TWICE DURING 20-25 DAYS
  6. ATENOLOL. [Concomitant]
     Active Substance: ATENOLOL
     Indication: PRODUCT USED FOR UNKNOWN INDICATION
     Dosage: 50 MG, BID
     Route: 048
     Dates: start: 20110920
  7. THIAMAZOLE [Concomitant]
     Active Substance: METHIMAZOLE
     Indication: TOXIC NODULAR GOITRE
     Dosage: 25 MG, QD
     Route: 048
     Dates: start: 20120213, end: 20120218
  8. ALEMTUZUMAB [Suspect]
     Active Substance: ALEMTUZUMAB
     Indication: MULTIPLE SCLEROSIS
     Dosage: 12 MG, QDX5
     Route: 042
     Dates: start: 20090306, end: 20090310
  9. ATENOLOL. [Concomitant]
     Active Substance: ATENOLOL
     Indication: PRODUCT USED FOR UNKNOWN INDICATION
     Dosage: 50 MG, BID
     Route: 048
     Dates: start: 20110920
  10. THYROZOL [Concomitant]
     Active Substance: METHIMAZOLE
     Dosage: 10 MG X 4 TIMES IN 8 HOURS
  11. TRIAMPUR [Concomitant]
     Active Substance: HYDROCHLOROTHIAZIDE\TRIAMTERENE
     Dosage: THREE TIMES IN A DAY- EVERY OTHER DAY; MONDAY, WEDNESDAY, SATURDAY (IN THE MORNING)
  12. THYROZOL [Concomitant]
     Active Substance: METHIMAZOLE
  13. THIAMAZOLE [Concomitant]
     Active Substance: METHIMAZOLE
     Indication: TOXIC NODULAR GOITRE
     Dosage: 5 MG, BID
     Route: 048
     Dates: start: 20110801, end: 20111221
  14. THIAMAZOLE [Concomitant]
     Active Substance: METHIMAZOLE
     Indication: TOXIC NODULAR GOITRE
     Dosage: 10 MG, BID
     Route: 048
     Dates: start: 20120219

REACTIONS (4)
  - Hypothyroidic goitre [Recovered/Resolved]
  - Endocrine ophthalmopathy [Not Recovered/Not Resolved]
  - Toxic goitre [Recovered/Resolved with Sequelae]
  - Toxic nodular goitre [Recovered/Resolved]

NARRATIVE: CASE EVENT DATE: 20110706
